FAERS Safety Report 8422322-X (Version None)
Quarter: 2012Q2

REPORT INFORMATION
  Report Type: 
  Country: None (occurrence: None)
  Receive Date: 20120323
  Receipt Date: 20110309
  Transmission Date: 20120825
  Serious: Yes (Hospitalization)
  Sender: FDA-Public Use
  Company Number: 163-21880-11021262

PATIENT
  Age: 78 Year
  Sex: Female
  Weight: 44.5 kg

DRUGS (1)
  1. REVLIMID [Suspect]
     Indication: MULTIPLE MYELOMA
     Dosage: 5 MG, 1 IN 1 D, PO
     Route: 048
     Dates: start: 20080428

REACTIONS (2)
  - GASTROINTESTINAL INFECTION [None]
  - DEHYDRATION [None]
